FAERS Safety Report 15889179 (Version 1)
Quarter: 2019Q1

REPORT INFORMATION
  Report Type: Spontaneous
  Country: US (occurrence: US)
  Receive Date: 20190129
  Receipt Date: 20190129
  Transmission Date: 20190417
  Serious: Yes (Disabling)
  Sender: FDA-Public Use
  Company Number: None

PATIENT
  Age: 33 Year
  Sex: Female
  Weight: 159.66 kg

DRUGS (1)
  1. NEXPLANON [Suspect]
     Active Substance: ETONOGESTREL
     Dates: start: 20180911

REACTIONS (6)
  - Insurance issue [None]
  - Vaginal haemorrhage [None]
  - Haemorrhage [None]
  - Product complaint [None]
  - Weight increased [None]
  - Pain in extremity [None]

NARRATIVE: CASE EVENT DATE: 20190104
